FAERS Safety Report 10216574 (Version 4)
Quarter: 2015Q2

REPORT INFORMATION
  Report Type: Spontaneous
  Country: US (occurrence: US)
  Receive Date: 20140604
  Receipt Date: 20150413
  Transmission Date: 20150821
  Serious: Yes (Life-Threatening, Hospitalization, Other)
  Sender: FDA-Public Use
  Company Number: US-BAYER-2014-081634

PATIENT
  Age: 30 Year
  Sex: Female
  Weight: 83 kg

DRUGS (1)
  1. MIRENA [Suspect]
     Active Substance: LEVONORGESTREL
     Indication: CONTRACEPTION
     Dosage: 20 MCG/24HR, CONT
     Route: 015
     Dates: start: 20101104, end: 20120606

REACTIONS (10)
  - Infection [None]
  - Emotional distress [None]
  - Anxiety [None]
  - Depression [None]
  - Menorrhagia [None]
  - Anhedonia [None]
  - Abdominal pain [None]
  - General physical health deterioration [None]
  - Injury [None]
  - Uterine perforation [None]

NARRATIVE: CASE EVENT DATE: 201106
